FAERS Safety Report 15112760 (Version 2)
Quarter: 2018Q3

REPORT INFORMATION
  Report Type: Spontaneous
  Country: CH (occurrence: CH)
  Receive Date: 20180705
  Receipt Date: 20180711
  Transmission Date: 20181010
  Serious: Yes (Hospitalization, Other)
  Sender: FDA-Public Use
  Company Number: CH-TAKEDA-2018TUS021302

PATIENT
  Age: 54 Year
  Sex: Male

DRUGS (3)
  1. EXFORGE [Concomitant]
     Active Substance: AMLODIPINE BESYLATE\VALSARTAN
     Indication: HYPERTENSION
     Dosage: 160/5 MG, QD
     Route: 065
  2. ADENURIC [Suspect]
     Active Substance: FEBUXOSTAT
     Indication: PRODUCT USED FOR UNKNOWN INDICATION
     Dosage: 40 MG, QD
     Route: 048
     Dates: end: 201805
  3. COTENOLOL [Concomitant]
     Indication: HYPERTENSION
     Dosage: 100/25 MG, QD
     Route: 065

REACTIONS (2)
  - Acute myocardial infarction [Recovered/Resolved with Sequelae]
  - Coronary arterial stent insertion [Recovered/Resolved]

NARRATIVE: CASE EVENT DATE: 20180531
